FAERS Safety Report 21048735 (Version 2)
Quarter: 2022Q3

REPORT INFORMATION
  Report Type: Report from Study
  Country: FR (occurrence: FR)
  Receive Date: 20220706
  Receipt Date: 20220922
  Transmission Date: 20221027
  Serious: Yes (Hospitalization, Other)
  Sender: FDA-Public Use
  Company Number: FR-AMGEN-FRACT2022110804

PATIENT
  Age: 72 Year
  Sex: Female
  Weight: 65 kg

DRUGS (18)
  1. PANITUMUMAB [Suspect]
     Active Substance: PANITUMUMAB
     Indication: Colorectal cancer
     Dosage: 410 MILLIGRAM (CYCLE 3) / CUMULATIVE DOSE: 1210 MG
     Route: 042
     Dates: start: 20220509
  2. OXALIPLATIN [Suspect]
     Active Substance: OXALIPLATIN
     Indication: Colorectal cancer
     Dosage: 145 MILLIGRAM (CYCLE 3)/ CUMULATIVE DOSE: 440 MG
     Route: 042
     Dates: start: 20220509
  3. LEUCOVORIN CALCIUM [Suspect]
     Active Substance: LEUCOVORIN CALCIUM
     Indication: Colorectal cancer
     Dosage: 340 MILLIGRAM (CYCLE 3)/ CUMULATIVE DOSE: 1028 MG
     Route: 042
     Dates: start: 20220509
  4. IRINOTECAN [Suspect]
     Active Substance: IRINOTECAN
     Indication: Colorectal cancer
     Dosage: 260 NANOGRAM (CYCLE 3)/ CUMULATIVE DOSE: 780 NG
     Route: 042
     Dates: start: 20220509
  5. FLUOROURACIL [Suspect]
     Active Substance: FLUOROURACIL
     Indication: Colorectal cancer
     Dosage: 680 NANOGRAM (CYCLE 3)/ CUMULATIVE DOSE: 2060 NG
     Route: 040
     Dates: start: 20220509
  6. FLUOROURACIL [Suspect]
     Active Substance: FLUOROURACIL
     Dosage: 4200 NANOGRAM (CYCLE 3)/ CUMULATIVE DOSE: 12600 NG
     Route: 042
     Dates: start: 20220509
  7. DOXYCYCLINE [Concomitant]
     Active Substance: DOXYCYCLINE
     Indication: Drug toxicity prophylaxis
     Dosage: 100 NANOGRAM
     Route: 048
     Dates: start: 20220509
  8. PERINDOPRIL [Concomitant]
     Active Substance: PERINDOPRIL
     Indication: Hypertension
     Dosage: 5 NANOGRAM
     Route: 048
     Dates: start: 20220509
  9. LOPERAMIDE [Concomitant]
     Active Substance: LOPERAMIDE
     Indication: Diarrhoea
     Dosage: 2 NANOGRAM
     Route: 048
     Dates: start: 20220509
  10. METOCLOPRAMIDE [Concomitant]
     Active Substance: METOCLOPRAMIDE
     Indication: Nausea
     Dosage: 10 NANOGRAM
     Route: 048
     Dates: start: 20220509
  11. METOCLOPRAMIDE [Concomitant]
     Active Substance: METOCLOPRAMIDE
     Indication: Vomiting
  12. EMLA [Concomitant]
     Active Substance: LIDOCAINE\PRILOCAINE
     Dosage: 12 UNIT
     Route: 065
  13. IMODIUM [Concomitant]
     Active Substance: LOPERAMIDE HYDROCHLORIDE
     Indication: Diarrhoea
     Dosage: 2 DOSAGE FORM, QD, (CAPSULES FOR DIARRHOEA AND 1 CAPSULE FOR EACH LOOSE STOOL (MAX. 8 CAPSULES/DAY))
     Route: 065
  14. IMODIUM [Concomitant]
     Active Substance: LOPERAMIDE HYDROCHLORIDE
     Indication: Diarrhoea
  15. PRIMPERAN [Concomitant]
     Active Substance: METOCLOPRAMIDE HYDROCHLORIDE
     Indication: Nausea
     Dosage: 10 MILLIGRAM, TID
     Route: 065
  16. PRIMPERAN [Concomitant]
     Active Substance: METOCLOPRAMIDE HYDROCHLORIDE
     Indication: Vomiting
  17. SODIUM BICARBONATE [Concomitant]
     Active Substance: SODIUM BICARBONATE
     Dosage: 14/1000: 1 MOUTH WASH, TID
     Route: 065
  18. ZIEXTENZO [Concomitant]
     Active Substance: PEGFILGRASTIM-BMEZ
     Dosage: 6 MILLIGRAM, 6 MG: 1 SC INJECTION Q.S. 12 INJECTIONS
     Route: 058

REACTIONS (1)
  - Renal failure [Recovered/Resolved]

NARRATIVE: CASE EVENT DATE: 20220621
